FAERS Safety Report 20951242 (Version 1)
Quarter: 2022Q2

REPORT INFORMATION
  Report Type: Spontaneous
  Country: US (occurrence: None)
  Receive Date: 20220610
  Receipt Date: 20220610
  Transmission Date: 20220721
  Serious: No
  Sender: FDA-Public Use
  Company Number: None

PATIENT
  Sex: 0

DRUGS (2)
  1. METFORMIN HYDROCHLORIDE [Suspect]
     Active Substance: METFORMIN HYDROCHLORIDE
  2. METHENAMINE HIPPURATE [Suspect]
     Active Substance: METHENAMINE HIPPURATE

REACTIONS (3)
  - Product dispensing error [None]
  - Product packaging confusion [None]
  - Product appearance confusion [None]
